FAERS Safety Report 17293817 (Version 1)
Quarter: 2020Q1

REPORT INFORMATION
  Report Type: Spontaneous
  Country: FR (occurrence: FR)
  Receive Date: 20200121
  Receipt Date: 20200121
  Transmission Date: 20200409
  Serious: Yes (Other)
  Sender: FDA-Public Use
  Company Number: FR-PFIZER INC-2020026902

PATIENT
  Age: 72 Year
  Sex: Male

DRUGS (1)
  1. CRIZOTINIB [Suspect]
     Active Substance: CRIZOTINIB
     Dosage: UNK
     Dates: start: 201801, end: 201808

REACTIONS (1)
  - Pulmonary toxicity [Unknown]

NARRATIVE: CASE EVENT DATE: 2018
